FAERS Safety Report 19876569 (Version 2)
Quarter: 2021Q4

REPORT INFORMATION
  Report Type: Spontaneous
  Country: TR (occurrence: TR)
  Receive Date: 20210924
  Receipt Date: 20211112
  Transmission Date: 20220304
  Serious: Yes (Hospitalization)
  Sender: FDA-Public Use
  Company Number: TR-NOVOPROD-847230

PATIENT
  Sex: Female
  Weight: 2.5 kg

DRUGS (3)
  1. NOVORAPID [Suspect]
     Active Substance: INSULIN ASPART
     Indication: Gestational diabetes
     Dosage: 22 IU, QD(AT 8 IU IN THE MORNING AND NOON, AND 6 IU IN THE EVENING DAILY.)
     Route: 064
     Dates: start: 20201125, end: 20210527
  2. LEVEMIR [Suspect]
     Active Substance: INSULIN DETEMIR
     Indication: Gestational diabetes
     Dosage: 8 IU, QD
     Route: 064
     Dates: start: 20201125, end: 20210527
  3. ALFAMED [Concomitant]
     Indication: Blood pressure increased
     Dosage: 2 TABLETS FOR 3 TIMES A DAY.
     Route: 064

REACTIONS (4)
  - Incubator therapy [Recovered/Resolved]
  - Sepsis [Recovered/Resolved]
  - Premature baby [Recovered/Resolved]
  - Foetal exposure during pregnancy [Recovered/Resolved]

NARRATIVE: CASE EVENT DATE: 20201125
